FAERS Safety Report 18673639 (Version 2)
Quarter: 2021Q4

REPORT INFORMATION
  Report Type: Report from Study
  Country: IT (occurrence: IT)
  Receive Date: 20201228
  Receipt Date: 20211223
  Transmission Date: 20220303
  Serious: Yes (Hospitalization)
  Sender: FDA-Public Use
  Company Number: IT-002147023-PHHY2018IT094561

PATIENT

DRUGS (2)
  1. RUXOLITINIB [Suspect]
     Active Substance: RUXOLITINIB
     Indication: Myelofibrosis
     Dosage: 20 MG, BID
     Route: 048
     Dates: start: 20171115
  2. EPARINA [Concomitant]
     Indication: Product used for unknown indication
     Dosage: 0.4 OT
     Route: 048
     Dates: start: 20190409, end: 20190509

REACTIONS (5)
  - Arthritis [Recovered/Resolved]
  - Dysplastic naevus [Unknown]
  - Neoplasm [Unknown]
  - Osteoarthritis [Unknown]
  - Skin disorder [Unknown]

NARRATIVE: CASE EVENT DATE: 20180809
